FAERS Safety Report 10691943 (Version 2)
Quarter: 2015Q1

REPORT INFORMATION
  Report Type: Spontaneous
  Country: FR (occurrence: FR)
  Receive Date: 20150105
  Receipt Date: 20150105
  Transmission Date: 20150720
  Serious: Yes (Life-Threatening, Hospitalization, Other)
  Sender: FDA-Public Use
  Company Number: FR-009507513-1411FRA008327

PATIENT
  Age: 28 Year
  Sex: Male
  Weight: 112 kg

DRUGS (12)
  1. STROMECTOL [Suspect]
     Active Substance: IVERMECTIN
     Indication: PROPHYLAXIS
     Dosage: 18 MG, ONCE
     Route: 048
     Dates: start: 20141115, end: 20141115
  2. PREGABALIN. [Concomitant]
     Active Substance: PREGABALIN
     Indication: NEURALGIA
     Dosage: 50 MG, BID
     Route: 048
     Dates: start: 201311
  3. SOLIFENACIN SUCCINATE [Concomitant]
     Active Substance: SOLIFENACIN SUCCINATE
     Indication: INCONTINENCE
     Dosage: 5 MG, QD
     Route: 048
     Dates: start: 2014, end: 201411
  4. INFLUENZA VIRUS VACCINE (UNSPECIFIED) [Suspect]
     Active Substance: INFLUENZA VIRUS VACCINE
     Indication: PROPHYLAXIS
     Route: 065
     Dates: start: 20141116, end: 20141116
  5. WARFARIN [Concomitant]
     Active Substance: WARFARIN
     Dosage: 5 MG, QD
     Route: 048
     Dates: end: 201411
  6. BACLOFEN. [Concomitant]
     Active Substance: BACLOFEN
     Indication: MUSCLE SPASMS
     Dosage: 10 MG, TID
     Route: 048
     Dates: start: 2014
  7. STROMECTOL [Suspect]
     Active Substance: IVERMECTIN
     Indication: ACARODERMATITIS
  8. MIDODRINE HYDROCHLORIDE. [Concomitant]
     Active Substance: MIDODRINE HYDROCHLORIDE
     Indication: ORTHOSTATIC HYPOTENSION
     Dosage: 2.5 MG, TID
     Route: 048
     Dates: start: 201311, end: 201411
  9. BACLOFEN. [Concomitant]
     Active Substance: BACLOFEN
     Indication: MUSCLE SPASTICITY
  10. DANTROLENE [Concomitant]
     Active Substance: DANTROLENE
     Indication: MUSCLE SPASTICITY
     Dosage: 25 MG, BID
     Route: 048
     Dates: start: 201311, end: 201411
  11. ZOPICLONE [Concomitant]
     Active Substance: ZOPICLONE
     Indication: INSOMNIA
     Dosage: 7.5 MG, QD
     Route: 048
     Dates: start: 2014, end: 201411
  12. WARFARIN [Concomitant]
     Active Substance: WARFARIN
     Indication: VENOUS THROMBOSIS
     Dosage: 2 MG, BID
     Route: 048
     Dates: start: 201312

REACTIONS (3)
  - Product use issue [Unknown]
  - Acute respiratory distress syndrome [Recovering/Resolving]
  - Sepsis [Recovered/Resolved]

NARRATIVE: CASE EVENT DATE: 20141115
